FAERS Safety Report 8395039-8 (Version None)
Quarter: 2012Q2

REPORT INFORMATION
  Report Type: 
  Country: None (occurrence: None)
  Receive Date: 20120524
  Receipt Date: 20120511
  Transmission Date: 20120825
  Serious: Yes (Other)
  Sender: FDA-Public Use
  Company Number: CPI 3341

PATIENT
  Age: 53 Year
  Sex: Male

DRUGS (3)
  1. ACETYLCYSTEINE [Suspect]
     Indication: OTOTOXICITY
     Dosage: TRANSTYMPANIC ONE DOSE
  2. ACETYLCYSTEINE [Suspect]
     Indication: OTOTOXICITY
     Dosage: TRANSTYMPANIC ONE DOSE
  3. LIDOCAINE 10% SOLUTION ADMINISTERED PRE-INFUSION [Concomitant]

REACTIONS (6)
  - EAR PAIN [None]
  - TYMPANIC MEMBRANE DISORDER [None]
  - EAR DISCOMFORT [None]
  - INCORRECT DOSE ADMINISTERED [None]
  - MIDDLE EAR INFLAMMATION [None]
  - INFLAMMATION [None]
